FAERS Safety Report 8445456-2 (Version None)
Quarter: 2012Q2

REPORT INFORMATION
  Report Type: 
  Country: None (occurrence: None)
  Receive Date: 20120618
  Receipt Date: 20120609
  Transmission Date: 20120825
  Serious: Yes (Death, Hospitalization, Other)
  Sender: FDA-Public Use
  Company Number: RU-PFIZER INC-2012129067

PATIENT
  Age: 58 Year
  Sex: Male

DRUGS (8)
  1. CORDARONE [Suspect]
     Indication: ATRIAL FLUTTER
  2. WARFARIN [Concomitant]
     Dosage: UNK
     Dates: start: 20120517, end: 20120518
  3. ENOXAPARIN SODIUM [Concomitant]
     Dosage: UNK
     Dates: start: 20120522
  4. DIGOXIN [Concomitant]
     Dosage: UNK
     Dates: start: 20120517
  5. CARVEDILOL [Concomitant]
     Dosage: UNK
     Dates: start: 20120517
  6. CORDARONE [Suspect]
     Indication: ARRHYTHMIA
     Dosage: UNK ONCE
     Route: 048
     Dates: start: 20120507
  7. ASPIRIN [Concomitant]
     Dosage: UNK
     Dates: start: 20120518
  8. CORDARONE [Suspect]
     Indication: INTENTIONAL OVERDOSE

REACTIONS (5)
  - PNEUMONIA [None]
  - BLOOD CREATININE INCREASED [None]
  - DRUG-INDUCED LIVER INJURY [None]
  - CARDIAC DISORDER [None]
  - INTENTIONAL OVERDOSE [None]
